FAERS Safety Report 11299262 (Version 1)
Quarter: 2015Q3

REPORT INFORMATION
  Report Type: Spontaneous
  Country: US (occurrence: US)
  Receive Date: 20150722
  Receipt Date: 20150722
  Transmission Date: 20151125
  Serious: Yes (Other)
  Sender: FDA-Public Use
  Company Number: US-ELI_LILLY_AND_COMPANY-US201208009412

PATIENT
  Age: 55 Year
  Sex: Male

DRUGS (3)
  1. ANTIINFLAMMATORY/ANTIRHEUMATIC PRODUCTS [Concomitant]
     Active Substance: UNSPECIFIED INGREDIENT
  2. EFFIENT [Suspect]
     Active Substance: PRASUGREL HYDROCHLORIDE
     Indication: STENT PLACEMENT
     Dosage: 60 MG, SINGLE LOADING DOSE
     Route: 048
     Dates: start: 20120731, end: 20120731
  3. EFFIENT [Suspect]
     Active Substance: PRASUGREL HYDROCHLORIDE
     Dosage: 10 MG, UNK
     Route: 048
     Dates: start: 201208, end: 20120827

REACTIONS (1)
  - Leukopenia [Unknown]
